FAERS Safety Report 15062051 (Version 3)
Quarter: 2018Q3

REPORT INFORMATION
  Report Type: Report from Study
  Country: US (occurrence: US)
  Receive Date: 20180625
  Receipt Date: 20180919
  Transmission Date: 20181010
  Serious: Yes (Death, Hospitalization)
  Sender: FDA-Public Use
  Company Number: US-ACTELION-A-US2018-167036

PATIENT
  Age: 72 Year
  Sex: Male
  Weight: 81.18 kg

DRUGS (5)
  1. XARELTO [Concomitant]
     Active Substance: RIVAROXABAN
  2. TRACLEER [Suspect]
     Active Substance: BOSENTAN
     Indication: PULMONARY ARTERIAL HYPERTENSION
     Dosage: 125 MG, BID
     Route: 048
  3. REVATIO [Concomitant]
     Active Substance: SILDENAFIL CITRATE
  4. VELETRI [Suspect]
     Active Substance: EPOPROSTENOL
     Indication: PULMONARY ARTERIAL HYPERTENSION
     Dosage: 27 NG/KG, PER MIN
     Route: 042
  5. REMODULIN [Concomitant]
     Active Substance: TREPROSTINIL

REACTIONS (12)
  - Condition aggravated [Unknown]
  - Diarrhoea [Unknown]
  - Thrombosis [Unknown]
  - Pulmonary hypertension [Fatal]
  - Disease complication [Unknown]
  - Pain in jaw [Unknown]
  - Flushing [Unknown]
  - Fluid retention [Unknown]
  - Dry eye [Unknown]
  - Cardiac failure [Fatal]
  - Therapy non-responder [Unknown]
  - Hypotension [Unknown]

NARRATIVE: CASE EVENT DATE: 20180615
